FAERS Safety Report 4995395-4 (Version None)
Quarter: 2006Q2

REPORT INFORMATION
  Report Type: 
  Country: None (occurrence: None)
  Receive Date: 20060503
  Receipt Date: 20060418
  Transmission Date: 20061013
  Serious: Yes (Death)
  Sender: FDA-Public Use
  Company Number: 2006S1003406

PATIENT
  Age: 42 Year
  Sex: Male

DRUGS (8)
  1. CLOZAPINE [Suspect]
     Indication: SCHIZOPHRENIA
     Dosage: 50 MG;QAM;ORAL
     Route: 048
     Dates: start: 20020101, end: 20060301
  2. CLOZAPINE [Suspect]
     Indication: SCHIZOPHRENIA
     Dosage: 300 MG;BID;ORAL
     Route: 048
     Dates: start: 20020101, end: 20060301
  3. LAXATIVES [Concomitant]
  4. ASCORBIC ACID [Concomitant]
  5. ATORVASTATIN CALCIUM [Concomitant]
  6. FOLIC ACID [Concomitant]
  7. CLONAZEPAM [Concomitant]
  8. INSULIN GLARGINE [Concomitant]

REACTIONS (1)
  - LUNG CANCER METASTATIC [None]
